FAERS Safety Report 13001512 (Version 1)
Quarter: 2016Q4

REPORT INFORMATION
  Report Type: Report from Study
  Country: GB (occurrence: GB)
  Receive Date: 20161206
  Receipt Date: 20161206
  Transmission Date: 20170207
  Serious: Yes (Other)
  Sender: FDA-Public Use
  Company Number: GB-CLINIGEN GROUP PLC/ CLINIGEN HEALTHCARE LTD-E2B_00004070

PATIENT
  Age: 35 Year
  Sex: Male
  Weight: 64 kg

DRUGS (3)
  1. ERYTHROMYCIN. [Concomitant]
     Active Substance: ERYTHROMYCIN
     Route: 065
  2. FOSCARNET?SODIUM [Suspect]
     Active Substance: FOSCARNET SODIUM
     Indication: CYTOMEGALOVIRUS INFECTION
     Route: 042
  3. DHPG [Concomitant]
     Route: 065

REACTIONS (2)
  - Glycosuria [Unknown]
  - Renal impairment [Unknown]

NARRATIVE: CASE EVENT DATE: 198901
